FAERS Safety Report 24684193 (Version 1)
Quarter: 2024Q4

REPORT INFORMATION
  Report Type: Spontaneous
  Country: DE (occurrence: DE)
  Receive Date: 20241202
  Receipt Date: 20241202
  Transmission Date: 20250115
  Serious: Yes (Hospitalization)
  Sender: AUROBINDO
  Company Number: DE-ROCHE-10000127748

PATIENT
  Age: 88 Year
  Sex: Female
  Weight: 57 kg

DRUGS (4)
  1. LEUCOVORIN CALCIUM [Suspect]
     Active Substance: LEUCOVORIN CALCIUM
     Indication: Neoplasm malignant
     Dosage: 608 MILLIGRAM, EVERY 2 WEEK
     Route: 042
     Dates: start: 20240723
  2. IRINOTECAN [Suspect]
     Active Substance: IRINOTECAN
     Indication: Neoplasm malignant
     Dosage: 164.16 MILLIGRAM, EVERY 2 WEEK
     Route: 042
     Dates: start: 20240723
  3. FLUOROURACIL [Suspect]
     Active Substance: FLUOROURACIL
     Indication: Neoplasm malignant
     Dosage: 2188.8 MILLIGRAM, EVERY 2 WEEK
     Route: 042
     Dates: start: 20240723, end: 20240724
  4. FLUOROURACIL [Suspect]
     Active Substance: FLUOROURACIL
     Dosage: 364.8 MILLIGRAM, EVERY 2 WEEK
     Route: 042
     Dates: start: 20240723

REACTIONS (3)
  - Abdominal pain [Recovered/Resolved]
  - Diarrhoea [Recovered/Resolved]
  - Urinary tract infection [Recovered/Resolved]

NARRATIVE: CASE EVENT DATE: 20240731
